FAERS Safety Report 23535829 (Version 1)
Quarter: 2024Q1

REPORT INFORMATION
  Report Type: Spontaneous
  Country: US (occurrence: US)
  Receive Date: 20240218
  Receipt Date: 20240218
  Transmission Date: 20240410
  Serious: No
  Sender: FDA-Public Use
  Company Number: US-BRISTOL-MYERS SQUIBB COMPANY-2024-025418

PATIENT
  Age: 72 Year
  Sex: Male

DRUGS (2)
  1. ELIQUIS [Suspect]
     Active Substance: APIXABAN
     Indication: Thrombosis
  2. PRIMIDONE [Interacting]
     Active Substance: PRIMIDONE
     Indication: Product used for unknown indication

REACTIONS (2)
  - Drug interaction [Unknown]
  - Drug ineffective [Unknown]
